FAERS Safety Report 17042758 (Version 1)
Quarter: 2019Q4

REPORT INFORMATION
  Report Type: Report from Study
  Country: IT (occurrence: IT)
  Receive Date: 20191118
  Receipt Date: 20191118
  Transmission Date: 20200122
  Serious: Yes (Other)
  Sender: FDA-Public Use
  Company Number: IT-TEVA-2019-IT-1138368

PATIENT
  Age: 52 Year
  Sex: Female

DRUGS (1)
  1. ETHINYLESTRADIOL W/LEVONORGESTREL [Suspect]
     Active Substance: ETHINYL ESTRADIOL\LEVONORGESTREL
     Indication: MENSTRUAL CYCLE MANAGEMENT
     Dosage: 1 DOSAGE FORMS DAILY; 1 DF, QD (21X LNG 100UG/EE 20UG) (TABLET)
     Route: 048
     Dates: start: 201902, end: 201903

REACTIONS (3)
  - Pain in extremity [Unknown]
  - Anaemia [Unknown]
  - Deep vein thrombosis [Recovered/Resolved]

NARRATIVE: CASE EVENT DATE: 20190313
